FAERS Safety Report 7776164-9 (Version None)
Quarter: 2011Q3

REPORT INFORMATION
  Report Type: 
  Country: None (occurrence: None)
  Receive Date: 20110926
  Receipt Date: 20110922
  Transmission Date: 20111222
  Serious: Yes (Hospitalization)
  Sender: FDA-Public Use
  Company Number: JP-BRISTOL-MYERS SQUIBB COMPANY-16088767

PATIENT
  Age: 74 Year
  Sex: Female
  Weight: 69 kg

DRUGS (13)
  1. SIMVASTATIN [Concomitant]
  2. TRIAZOLAM [Concomitant]
  3. PACLITAXEL [Suspect]
     Indication: BREAST CANCER
     Dosage: ALSO TAKEN ON 23JUN2010 INTERRUPTED ON 30JUN10 AND RESTAT ON 27JUL10
     Route: 042
     Dates: start: 20100616, end: 20100630
  4. ZYPREXA [Concomitant]
     Indication: NEUROSIS
  5. TRASTUZUMAB [Suspect]
     Indication: BREAST CANCER
     Dosage: FROM 4MG/KG TO 2MG/KG INTERRUPTED ON 30JUN10 AND RESTARTED ON 27JUL10
     Route: 042
     Dates: start: 20100616
  6. LOPERAMIDE HCL [Concomitant]
     Indication: DIARRHOEA
     Dates: start: 20100629, end: 20100707
  7. LOXOPROFEN SODIUM [Concomitant]
  8. GENTAMICIN SULFATE [Concomitant]
     Dates: start: 20100525
  9. CILOSTAZOL [Concomitant]
  10. STOGAR [Concomitant]
     Indication: PROPHYLAXIS
  11. NIFEDIPINE [Concomitant]
     Indication: HYPERTENSION
  12. BUFEXAMAC [Concomitant]
     Dates: start: 20100525
  13. LACTOBACILLUS BIFIDUS [Concomitant]
     Indication: DIARRHOEA
     Dosage: LYOPHILIZED
     Dates: start: 20100625, end: 20100707

REACTIONS (3)
  - PNEUMONIA ASPIRATION [None]
  - ILEUS [None]
  - DEHYDRATION [None]
